FAERS Safety Report 4821241-5 (Version None)
Quarter: 2005Q4

REPORT INFORMATION
  Report Type: 
  Country: None (occurrence: None)
  Receive Date: 20051107
  Receipt Date: 20051025
  Transmission Date: 20060501
  Serious: Yes (Other)
  Sender: FDA-Public Use
  Company Number: LV-BRISTOL-MYERS SQUIBB COMPANY-13164074

PATIENT
  Age: 30 Year
  Sex: Female

DRUGS (1)
  1. STOCRIN TABS 600 MG [Suspect]
     Route: 048
     Dates: start: 20050901, end: 20050901

REACTIONS (5)
  - ANXIETY [None]
  - DIZZINESS [None]
  - DYSLEXIA [None]
  - HEADACHE [None]
  - OVERDOSE [None]
